FAERS Safety Report 5909721-2 (Version None)
Quarter: 2008Q4

REPORT INFORMATION
  Report Type: 
  Country: None (occurrence: None)
  Receive Date: 20081007
  Receipt Date: 20080926
  Transmission Date: 20090506
  Serious: Yes (Death, Other)
  Sender: FDA-Public Use
  Company Number: ES-JNJFOC-20080906555

PATIENT
  Age: 37 Year
  Sex: Male

DRUGS (5)
  1. REMICADE [Suspect]
  2. REMICADE [Suspect]
     Indication: CROHN'S DISEASE
  3. VANCOMYCIN HYDROCHLORIDE [Concomitant]
     Indication: ABSCESS
  4. IMUREL [Concomitant]
     Indication: CROHN'S DISEASE
  5. CORTICOSTERIOD [Concomitant]
     Indication: CROHN'S DISEASE

REACTIONS (3)
  - ABSCESS [None]
  - DISSEMINATED INTRAVASCULAR COAGULATION [None]
  - SEPTIC SHOCK [None]
